FAERS Safety Report 5935007-6 (Version None)
Quarter: 2008Q4

REPORT INFORMATION
  Report Type: 
  Country: None (occurrence: None)
  Receive Date: 20081021
  Receipt Date: 20080528
  Transmission Date: 20090506
  Serious: Yes (Hospitalization)
  Sender: FDA-Public Use
  Company Number: 2008S1009110

PATIENT
  Age: 88 Year
  Sex: Female

DRUGS (6)
  1. ENALAPRIL MALEATE [Suspect]
     Indication: HYPERTENSION
     Dosage: 10 MG
  2. CHERATUSSIN AC [Concomitant]
  3. ALENDRONIC ACID [Concomitant]
  4. CALCIUM [Concomitant]
  5. ACETAMINOPHEN [Concomitant]
  6. LEVOFLOXACIN [Concomitant]

REACTIONS (1)
  - COUGH [None]
